FAERS Safety Report 20393433 (Version 1)
Quarter: 2022Q1

REPORT INFORMATION
  Report Type: Spontaneous
  Country: US (occurrence: None)
  Receive Date: 20220128
  Receipt Date: 20220128
  Transmission Date: 20220423
  Serious: No
  Sender: FDA-Public Use
  Company Number: None

PATIENT
  Age: 72 Year
  Sex: Female
  Weight: 68.9 kg

DRUGS (2)
  1. EVUSHELD [Suspect]
     Active Substance: CILGAVIMAB\TIXAGEVIMAB
     Indication: Allogenic stem cell transplantation
     Dosage: OTHER FREQUENCY : ONCE;?
     Route: 030
     Dates: start: 20220128, end: 20220128
  2. EVUSHELD [Suspect]
     Active Substance: CILGAVIMAB\TIXAGEVIMAB
     Indication: Immunosuppression

REACTIONS (3)
  - Injection site pruritus [None]
  - Injection site haematoma [None]
  - Injection site erythema [None]

NARRATIVE: CASE EVENT DATE: 20220128
